FAERS Safety Report 17305803 (Version 1)
Quarter: 2020Q1

REPORT INFORMATION
  Report Type: Spontaneous
  Country: GB (occurrence: GB)
  Receive Date: 20200123
  Receipt Date: 20200123
  Transmission Date: 20200409
  Serious: Yes (Other)
  Sender: FDA-Public Use
  Company Number: GB-PFIZER INC-2020026925

PATIENT
  Age: 69 Year
  Sex: Male
  Weight: 72 kg

DRUGS (10)
  1. GABAPENTIN. [Suspect]
     Active Substance: GABAPENTIN
     Dosage: 300 MG, 1X/DAY
     Dates: start: 20191114, end: 20191120
  2. CELECOXIB. [Concomitant]
     Active Substance: CELECOXIB
     Dosage: 2 DF, 1X/DAY
     Dates: start: 20181030
  3. DOVONEX [Concomitant]
     Active Substance: CALCIPOTRIENE
     Dosage: 2 DF, 1X/DAY (USE AS DIRECTED UNLESS DOVOBET REQU...)
     Dates: start: 20181030
  4. CALCIPOTRIOL [Concomitant]
     Active Substance: CALCIPOTRIENE
     Dosage: UNK (APPLY OD-BD AS DIRECTED)
     Dates: start: 20190405
  5. GABAPENTIN. [Suspect]
     Active Substance: GABAPENTIN
     Dosage: 300 MG, 2X/DAY
     Dates: start: 20191121
  6. TILDIEM [Concomitant]
     Active Substance: DILTIAZEM HYDROCHLORIDE
     Dosage: 2 DF, 1X/DAY
     Dates: start: 20190211
  7. EZETIMIBE. [Concomitant]
     Active Substance: EZETIMIBE
     Dosage: 1 DF, 1X/DAY
     Dates: start: 20181030
  8. METOCLOPRAMIDE. [Concomitant]
     Active Substance: METOCLOPRAMIDE
     Dosage: 1 DF, AS NEEDED ((TAKE 3 TIMES/DAY))
     Dates: start: 20190820
  9. SALICYLIC ACID. [Concomitant]
     Active Substance: SALICYLIC ACID
     Dosage: 4 DF, 1X/DAY (APPLY)
     Dates: start: 20190327
  10. LANSOPRAZOLE. [Concomitant]
     Active Substance: LANSOPRAZOLE
     Dosage: 1 DF, 1X/DAY
     Dates: start: 20190509

REACTIONS (2)
  - Visual acuity reduced [Unknown]
  - Vision blurred [Unknown]

NARRATIVE: CASE EVENT DATE: 20191212
